FAERS Safety Report 7940326-8 (Version None)
Quarter: 2011Q4

REPORT INFORMATION
  Report Type: 
  Country: None (occurrence: None)
  Receive Date: 20111126
  Receipt Date: 20110927
  Transmission Date: 20120403
  Serious: No
  Sender: FDA-Public Use
  Company Number: US-BAYER-2011-093607

PATIENT
  Age: 47 Year
  Sex: Female
  Weight: 48 kg

DRUGS (4)
  1. CALCIUM CARBONATE [Concomitant]
  2. MULTI-VITAMINS [Concomitant]
  3. ALEVE (CAPLET) [Suspect]
     Indication: MYALGIA
     Dosage: 2 DF, Q3HR
     Route: 048
     Dates: start: 20110801
  4. CALCIUM CARBONATE [Concomitant]

REACTIONS (7)
  - NAUSEA [None]
  - DIARRHOEA [None]
  - GASTROOESOPHAGEAL REFLUX DISEASE [None]
  - ABDOMINAL DISCOMFORT [None]
  - VOMITING [None]
  - SOMNOLENCE [None]
  - NASAL CONGESTION [None]
